FAERS Safety Report 10009936 (Version 2)
Quarter: 2014Q1

REPORT INFORMATION
  Report Type: Spontaneous
  Country: US (occurrence: US)
  Receive Date: 20140312
  Receipt Date: 20140312
  Transmission Date: 20141002
  Serious: Yes (Other)
  Sender: FDA-Public Use
  Company Number: US-INCYTE CORPORATION-2013IN000299

PATIENT
  Age: 80 Year
  Sex: Male
  Weight: 88.44 kg

DRUGS (17)
  1. JAKAFI [Suspect]
     Indication: MYELOFIBROSIS
     Dosage: 15 MG, BID
     Route: 048
     Dates: start: 20120619, end: 201301
  2. JAKAFI [Suspect]
     Indication: MYELODYSPLASTIC SYNDROME
  3. ATENOLOL [Concomitant]
     Dosage: 50 MG, QD
     Route: 048
  4. VITAMIN E [Concomitant]
  5. VITAMIN D [Concomitant]
  6. MULTIVITAMINS, PLAIN [Concomitant]
     Dosage: UNK, QD
  7. GEMFIBROZIL [Concomitant]
  8. FOLIC ACID [Concomitant]
  9. FISH OIL [Concomitant]
  10. VITAMIN B12 [Concomitant]
  11. LISINOPRIL [Concomitant]
     Dosage: 40 MG, QD
     Route: 048
  12. LOVASTATIN [Concomitant]
  13. TRAVATAN [Concomitant]
     Route: 031
  14. ASPIRIN [Concomitant]
     Dosage: 81 MG, UNK
  15. GARLIC [Concomitant]
  16. KLOR-CON [Concomitant]
     Dosage: 10 MEQ, QD
     Route: 048
  17. TORSEMIDE [Suspect]
     Dosage: 20 MG, QD
     Route: 048

REACTIONS (5)
  - Anaemia [Unknown]
  - Disease progression [Not Recovered/Not Resolved]
  - Splenomegaly [Not Recovered/Not Resolved]
  - Lung consolidation [Unknown]
  - Goitre [Unknown]
